FAERS Safety Report 5463531-1 (Version None)
Quarter: 2007Q3

REPORT INFORMATION
  Report Type: 
  Country: None (occurrence: None)
  Receive Date: 20070919
  Receipt Date: 20070724
  Transmission Date: 20080115
  Serious: Yes (Disabling)
  Sender: FDA-Public Use
  Company Number: DSU-2007-00598

PATIENT
  Sex: Male

DRUGS (2)
  1. BENICAR [Suspect]
     Indication: HYPERTENSION
     Dosage: PER ORAL
     Route: 048
     Dates: start: 20050701
  2. AVALIDE (HYDROCHLOROTHIAZIDE, IRBESARTAN) (HYDROCHLOROTHIAZIDE, IRBESA [Concomitant]

REACTIONS (5)
  - ASTHENIA [None]
  - INJURY [None]
  - LOSS OF CONSCIOUSNESS [None]
  - ROAD TRAFFIC ACCIDENT [None]
  - SYNCOPE [None]
